FAERS Safety Report 16079240 (Version 1)
Quarter: 2019Q1

REPORT INFORMATION
  Report Type: Spontaneous
  Country: US (occurrence: US)
  Receive Date: 20190315
  Receipt Date: 20190315
  Transmission Date: 20190418
  Serious: No
  Sender: FDA-Public Use
  Company Number: US-TEVA-2019-US-1014587

PATIENT
  Sex: Female

DRUGS (1)
  1. LORAZEPAM TABLET [Suspect]
     Active Substance: LORAZEPAM
     Indication: ANXIETY
     Dosage: .25 MILLIGRAM DAILY;
     Route: 065
     Dates: start: 2014

REACTIONS (2)
  - Withdrawal syndrome [Unknown]
  - Insomnia [Unknown]

NARRATIVE: CASE EVENT DATE: 20190206
